FAERS Safety Report 7437450-5 (Version None)
Quarter: 2011Q2

REPORT INFORMATION
  Report Type: 
  Country: None (occurrence: None)
  Receive Date: 20110426
  Receipt Date: 20100618
  Transmission Date: 20111010
  Serious: No
  Sender: FDA-Public Use
  Company Number: US-PFIZER INC-2010076608

PATIENT
  Sex: Female
  Weight: 63 kg

DRUGS (3)
  1. ACTONEL [Concomitant]
     Indication: OSTEOPENIA
     Dosage: UNK
     Route: 048
     Dates: start: 20070101
  2. ESTRING [Suspect]
     Indication: POSTMENOPAUSE
  3. ESTRING [Suspect]
     Indication: VULVOVAGINAL DRYNESS
     Dosage: 2 MG, UNK
     Route: 067
     Dates: end: 20100603

REACTIONS (1)
  - GENITAL DISCHARGE [None]
